FAERS Safety Report 11883972 (Version 2)
Quarter: 2016Q1

REPORT INFORMATION
  Report Type: Spontaneous
  Country: US (occurrence: US)
  Receive Date: 20160102
  Receipt Date: 20160104
  Transmission Date: 20160526
  Serious: Yes (Hospitalization, Other)
  Sender: FDA-Public Use
  Company Number: US-ZYDUS-009889

PATIENT
  Age: 42 Year
  Sex: Male

DRUGS (1)
  1. METFORMIN [Suspect]
     Active Substance: METFORMIN HYDROCHLORIDE
     Indication: PRODUCT USED FOR UNKNOWN INDICATION
     Route: 048

REACTIONS (9)
  - Respiratory failure [Unknown]
  - Haemodialysis [None]
  - Renal failure [Unknown]
  - Metabolic acidosis [Unknown]
  - Intentional overdose [Unknown]
  - Acute kidney injury [Recovered/Resolved]
  - Multiple organ dysfunction syndrome [Unknown]
  - Shock [Unknown]
  - Disseminated intravascular coagulation [Unknown]
